FAERS Safety Report 15900421 (Version 1)
Quarter: 2019Q1

REPORT INFORMATION
  Report Type: Spontaneous
  Country: SE (occurrence: SE)
  Receive Date: 20190201
  Receipt Date: 20190201
  Transmission Date: 20190417
  Serious: Yes (Life-Threatening)
  Sender: FDA-Public Use
  Company Number: SE-PFIZER INC-2019043280

PATIENT
  Age: 34 Year
  Sex: Female
  Weight: 54 kg

DRUGS (7)
  1. VENLAFAXINE HCL [Suspect]
     Active Substance: VENLAFAXINE HYDROCHLORIDE
     Indication: DEPRESSION
     Dosage: 150 MG, UNK
     Dates: start: 201705
  2. YASMINELLE [Concomitant]
     Active Substance: DROSPIRENONE
  3. ATARAX [Concomitant]
     Active Substance: HYDROXYZINE HYDROCHLORIDE
     Dosage: UNK, AS NEEDED
  4. VENLAFAXINE HCL [Suspect]
     Active Substance: VENLAFAXINE HYDROCHLORIDE
     Dosage: 37.5 MG, UNK
     Dates: end: 20181230
  5. LAMOTRIGINE. [Concomitant]
     Active Substance: LAMOTRIGINE
     Dates: start: 201810
  6. ANTABUS [Concomitant]
     Active Substance: DISULFIRAM
     Dates: start: 201812
  7. IMOVANE [Concomitant]
     Active Substance: ZOPICLONE
     Dosage: UNK, AS NEEDED

REACTIONS (8)
  - Self-injurious ideation [Recovering/Resolving]
  - Paraesthesia [Recovering/Resolving]
  - Photophobia [Recovering/Resolving]
  - Drug withdrawal syndrome [Recovering/Resolving]
  - Mood swings [Recovering/Resolving]
  - Dizziness [Recovering/Resolving]
  - Tenderness [Recovering/Resolving]
  - Akathisia [Recovering/Resolving]

NARRATIVE: CASE EVENT DATE: 201812
